FAERS Safety Report 21266027 (Version 1)
Quarter: 2022Q3

REPORT INFORMATION
  Report Type: Spontaneous
  Country: CN (occurrence: CN)
  Receive Date: 20220829
  Receipt Date: 20220829
  Transmission Date: 20221026
  Serious: Yes (Hospitalization, Other)
  Sender: FDA-Public Use
  Company Number: CN-PFIZER INC-202201095659

PATIENT
  Age: 79 Year
  Sex: Male

DRUGS (5)
  1. EPIRUBICIN HYDROCHLORIDE [Suspect]
     Active Substance: EPIRUBICIN HYDROCHLORIDE
     Indication: Non-Hodgkin^s lymphoma
     Dosage: 50 MG
     Dates: start: 20220725, end: 20220725
  2. CYCLOPHOSPHAMIDE [Suspect]
     Active Substance: CYCLOPHOSPHAMIDE
     Indication: Non-Hodgkin^s lymphoma
     Dosage: 0.6 UNK
     Dates: start: 20220725, end: 20220725
  3. VINDESINE [Suspect]
     Active Substance: VINDESINE
     Indication: Non-Hodgkin^s lymphoma
     Dosage: 4 MG
     Dates: start: 20220725, end: 20220725
  4. DEXAMETHASONE [Suspect]
     Active Substance: DEXAMETHASONE
     Indication: Non-Hodgkin^s lymphoma
     Dosage: 15 MG
     Dates: start: 20220725, end: 20220729
  5. RITUXIMAB [Suspect]
     Active Substance: RITUXIMAB
     Indication: Non-Hodgkin^s lymphoma
     Dosage: 600 MG
     Dates: start: 20220726, end: 20220726

REACTIONS (11)
  - Myelosuppression [Unknown]
  - Diffuse large B-cell lymphoma [Unknown]
  - Renal impairment [Unknown]
  - White blood cell disorder [Unknown]
  - Leukoplakia oral [Unknown]
  - Neutrophil count decreased [Unknown]
  - Pyrexia [Unknown]
  - Cancer pain [Unknown]
  - Nutritional condition abnormal [Unknown]
  - Granulocyte count decreased [Unknown]
  - Infection [Unknown]

NARRATIVE: CASE EVENT DATE: 20220801
